FAERS Safety Report 24551382 (Version 1)
Quarter: 2024Q4

REPORT INFORMATION
  Report Type: Report from Study
  Country: CA (occurrence: CA)
  Receive Date: 20241026
  Receipt Date: 20241026
  Transmission Date: 20250114
  Serious: Yes (Other)
  Sender: ABBVIE
  Company Number: CA-ABBVIE-5972913

PATIENT
  Age: 43 Year
  Sex: Female
  Weight: 86 kg

DRUGS (2)
  1. RINVOQ [Suspect]
     Active Substance: UPADACITINIB
     Indication: Crohn^s disease
     Route: 048
     Dates: start: 20240718
  2. PREDNISONE [Concomitant]
     Active Substance: PREDNISONE
     Indication: Crohn^s disease
     Dosage: ONCE DAILY
     Route: 048

REACTIONS (13)
  - Gangrene [Unknown]
  - Groin abscess [Unknown]
  - Malaise [Unknown]
  - Abdominal pain [Unknown]
  - Abdominal mass [Unknown]
  - Abdominal tenderness [Unknown]
  - Arthralgia [Unknown]
  - Fistula [Not Recovered/Not Resolved]
  - Abscess [Unknown]
  - Skin odour abnormal [Unknown]
  - Pain [Unknown]
  - Impaired work ability [Unknown]
  - Social problem [Unknown]

NARRATIVE: CASE EVENT DATE: 20240101
